FAERS Safety Report 4723546-5 (Version None)
Quarter: 2005Q3

REPORT INFORMATION
  Report Type: 
  Country: None (occurrence: None)
  Receive Date: 20050725
  Receipt Date: 20050614
  Transmission Date: 20060218
  Serious: Yes (Other)
  Sender: FDA-Public Use
  Company Number: 2005AP03296

PATIENT
  Age: 12240 Day
  Sex: Female

DRUGS (7)
  1. SEROQUEL [Suspect]
     Indication: PERSONALITY DISORDER
     Route: 048
     Dates: start: 20030701, end: 20050409
  2. GASTER [Suspect]
     Indication: PROPHYLAXIS
     Route: 048
     Dates: start: 20030425, end: 20050409
  3. LUVOX [Suspect]
     Indication: PERSONALITY DISORDER
     Route: 048
     Dates: start: 20030719, end: 20050409
  4. EVAMYL [Suspect]
     Indication: PERSONALITY DISORDER
     Route: 048
     Dates: start: 20030401, end: 20050412
  5. ALPRAZOLAM [Concomitant]
     Indication: PERSONALITY DISORDER
     Route: 048
     Dates: start: 20030425, end: 20050412
  6. LENDORMIN [Concomitant]
     Indication: PERSONALITY DISORDER
     Route: 048
     Dates: start: 20031206
  7. DOGMATYL [Concomitant]
     Indication: PERSONALITY DISORDER
     Route: 048
     Dates: start: 20030610, end: 20050412

REACTIONS (3)
  - GRANULOCYTOPENIA [None]
  - HAEMOGLOBIN DECREASED [None]
  - TRANSAMINASES INCREASED [None]
